FAERS Safety Report 11152540 (Version 1)
Quarter: 2015Q2

REPORT INFORMATION
  Report Type: Spontaneous
  Country: IN (occurrence: IN)
  Receive Date: 20150601
  Receipt Date: 20150601
  Transmission Date: 20150821
  Serious: Yes (Hospitalization, Other)
  Sender: FDA-Public Use
  Company Number: IN-ACTAVIS-2015-10643

PATIENT
  Age: 46 Year
  Sex: Male

DRUGS (1)
  1. PHENYTOIN (AMALLC) [Suspect]
     Active Substance: PHENYTOIN
     Indication: CONVULSION PROPHYLAXIS
     Dosage: 100 MG, TID
     Route: 065

REACTIONS (1)
  - Erythema multiforme [Recovered/Resolved]
